FAERS Safety Report 6909070-X (Version None)
Quarter: 2010Q3

REPORT INFORMATION
  Report Type: 
  Country: None (occurrence: None)
  Receive Date: 20100805
  Receipt Date: 20100804
  Transmission Date: 20110219
  Serious: Yes (Hospitalization)
  Sender: FDA-Public Use
  Company Number: TW-BRISTOL-MYERS SQUIBB COMPANY-15223431

PATIENT
  Age: 49 Year
  Sex: Male

DRUGS (3)
  1. CETUXIMAB [Suspect]
     Indication: HEAD AND NECK CANCER
  2. CISPLATIN [Suspect]
     Indication: HEAD AND NECK CANCER
     Dosage: INTERRUPTED; CONTINUED AFTER RECOVERY.
  3. MINOCYCLINE HCL [Suspect]
     Indication: SKIN TOXICITY

REACTIONS (1)
  - TOXIC EPIDERMAL NECROLYSIS [None]
